FAERS Safety Report 15651108 (Version 1)
Quarter: 2018Q4

REPORT INFORMATION
  Report Type: Spontaneous
  Country: US (occurrence: US)
  Receive Date: 20181123
  Receipt Date: 20181123
  Transmission Date: 20190205
  Serious: Yes (Other)
  Sender: FDA-Public Use
  Company Number: US-009507513-1811USA006267

PATIENT
  Age: 59 Year
  Sex: Female

DRUGS (14)
  1. ESCITALOPRAM [Concomitant]
     Active Substance: ESCITALOPRAM OXALATE
     Dosage: 10 MILLIGRAM, QD
     Route: 048
  2. GLIPIZIDE. [Concomitant]
     Active Substance: GLIPIZIDE
     Dosage: 10 MILLIGRAM, QD
  3. ASPIRIN. [Concomitant]
     Active Substance: ASPIRIN
     Dosage: 81 MILLIGRAM, QD
     Route: 048
  4. INVANZ [Suspect]
     Active Substance: ERTAPENEM SODIUM
     Indication: ABSCESS
     Route: 042
  5. METFORMIN [Concomitant]
     Active Substance: METFORMIN HYDROCHLORIDE
     Dosage: 500 MILLIGRAM, FOUR TIMES DAILY
     Route: 048
  6. SIMVASTATIN. [Concomitant]
     Active Substance: SIMVASTATIN
     Dosage: 10 MILLIGRAM, QD
     Route: 048
  7. MEROPENEM. [Suspect]
     Active Substance: MEROPENEM
     Indication: ABSCESS
     Dosage: UNK
     Route: 042
  8. LEVOTHYROXINE SODIUM. [Concomitant]
     Active Substance: LEVOTHYROXINE SODIUM
     Dosage: 100 MICROGRAM, QD
     Route: 048
  9. CHOLECALCIFEROL [Concomitant]
     Active Substance: CHOLECALCIFEROL
     Dosage: 1000 UNITS, QD
     Route: 048
  10. ONDANSETRON [Concomitant]
     Active Substance: ONDANSETRON
     Indication: NAUSEA
     Dosage: 8 MILLIGRAM, Q 8H
     Route: 048
  11. RANITIDINE. [Concomitant]
     Active Substance: RANITIDINE
     Indication: NAUSEA
  12. RANITIDINE. [Concomitant]
     Active Substance: RANITIDINE
     Indication: DIARRHOEA
  13. LOPERAMIDE [Concomitant]
     Active Substance: LOPERAMIDE
  14. SUNITINIB MALATE. [Concomitant]
     Active Substance: SUNITINIB MALATE
     Dosage: 50 MILLIGRAM, QD (4 WEEKS OF A SIX-WEEK CYCLE)
     Route: 048

REACTIONS (1)
  - Seizure [Unknown]
